FAERS Safety Report 9386200 (Version 1)
Quarter: 2013Q3

REPORT INFORMATION
  Report Type: Spontaneous
  Country: US (occurrence: US)
  Receive Date: 20130708
  Receipt Date: 20130708
  Transmission Date: 20140515
  Serious: Yes (Other)
  Sender: FDA-Public Use
  Company Number: US-AMGEN-USASP2013040724

PATIENT
  Age: 38 Year
  Sex: Male

DRUGS (5)
  1. PROCRIT [Suspect]
     Indication: HAEMOGLOBIN ABNORMAL
     Dosage: UNK
     Route: 065
  2. PROCRIT [Suspect]
     Indication: ANAEMIA
  3. TELAPREVIR [Suspect]
     Indication: HEPATITIS C
     Dosage: UNK
     Route: 048
     Dates: start: 20121106, end: 20130129
  4. RIBAVIRIN [Suspect]
     Indication: HEPATITIS C
     Dosage: UNK
     Route: 065
     Dates: start: 20121106
  5. PEGASYS [Suspect]
     Indication: HEPATITIS C
     Dosage: UNK
     Route: 065
     Dates: start: 20121106, end: 20130507

REACTIONS (7)
  - Anaemia [Recovering/Resolving]
  - Oropharyngeal pain [Recovering/Resolving]
  - Alopecia [Recovering/Resolving]
  - Dyspnoea [Recovering/Resolving]
  - Rash papular [Recovered/Resolved]
  - Nausea [Recovering/Resolving]
  - Headache [Recovering/Resolving]
